FAERS Safety Report 7455937-6 (Version None)
Quarter: 2011Q2

REPORT INFORMATION
  Report Type: 
  Country: None (occurrence: None)
  Receive Date: 20110503
  Receipt Date: 20110428
  Transmission Date: 20111010
  Serious: Yes (Hospitalization)
  Sender: FDA-Public Use
  Company Number: PHHY2011IT35568

PATIENT
  Sex: Female

DRUGS (1)
  1. RISPERIDONE [Suspect]
     Dosage: UNK UKN, UNK

REACTIONS (1)
  - URTICARIA [None]
